FAERS Safety Report 5734314-X (Version None)
Quarter: 2008Q2

REPORT INFORMATION
  Report Type: 
  Country: None (occurrence: None)
  Receive Date: 20080507
  Receipt Date: 20080424
  Transmission Date: 20081010
  Serious: Yes (Death)
  Sender: FDA-Public Use
  Company Number: DAB-2008-00021

PATIENT
  Age: 69 Year
  Sex: Female
  Weight: 94.5 kg

DRUGS (14)
  1. PACLITAXEL [Suspect]
     Dosage: OVARIAN CANCER [10033128]
     Dates: start: 20080410, end: 20080410
  2. ATENOLOL [Concomitant]
  3. DOMPERIDONE (DOMPERIDONE) [Concomitant]
  4. DOXAZOSIN MESYLATE [Concomitant]
  5. FUROSEMIDE [Concomitant]
  6. GLYCERYL TRINITRATE (GLYCERYL TRINITRATE) [Concomitant]
  7. IRBESARTAN [Concomitant]
  8. ISOSORBIDE MONONITRATE [Concomitant]
  9. NICORANDIL (NICORANDIL) [Concomitant]
  10. OMEPRAZOLE [Concomitant]
  11. ACETAMINOPHEN [Concomitant]
  12. ACETAMINOPHEN [Concomitant]
  13. QUININE SULPHATE (QUININE SULFATE) [Concomitant]
  14. SIMVASTATIN [Concomitant]

REACTIONS (1)
  - CARDIO-RESPIRATORY ARREST [None]
